FAERS Safety Report 19672887 (Version 1)
Quarter: 2021Q3

REPORT INFORMATION
  Report Type: Report from Study
  Country: US (occurrence: US)
  Receive Date: 20210809
  Receipt Date: 20210809
  Transmission Date: 20211014
  Serious: No
  Sender: FDA-Public Use
  Company Number: NVSC2021US153374

PATIENT
  Sex: Male

DRUGS (1)
  1. COSENTYX [Suspect]
     Active Substance: SECUKINUMAB
     Indication: PSORIASIS
     Dosage: 300 MG, QW (BENEATH THE SKIN,USUALLY VIA INJECTION)
     Route: 058

REACTIONS (4)
  - Decreased immune responsiveness [Unknown]
  - Sinusitis [Unknown]
  - Herpes zoster [Unknown]
  - Diarrhoea [Unknown]
